FAERS Safety Report 8996094 (Version 1)
Quarter: 2013Q1

REPORT INFORMATION
  Report Type: Spontaneous
  Country: US (occurrence: US)
  Receive Date: 20130103
  Receipt Date: 20130103
  Transmission Date: 20140127
  Serious: Yes (Hospitalization, Other)
  Sender: FDA-Public Use
  Company Number: US-ABBOTT-12P-163-0927885-00

PATIENT
  Sex: Female
  Weight: 65.83 kg

DRUGS (10)
  1. SYNTHROID [Suspect]
     Indication: PRODUCT USED FOR UNKNOWN INDICATION
     Dates: start: 1988
  2. SYNTHROID [Suspect]
     Dates: start: 2011
  3. SYNTHROID [Suspect]
  4. SYNTHROID [Suspect]
     Dosage: ALTERNATING 100MCG/88MCG EVERY OTHER DAY
     Dates: start: 201204
  5. VALTREX [Concomitant]
     Indication: ANTIVIRAL TREATMENT
  6. ASPIRIN [Concomitant]
     Indication: PROPHYLAXIS
     Dosage: 81MG DAILY
  7. ASPIRIN [Concomitant]
     Indication: CARDIAC DISORDER
  8. VITAMINS [Concomitant]
     Indication: VITAMIN SUPPLEMENTATION
  9. OMEGA 3 [Concomitant]
     Indication: SUPPLEMENTATION THERAPY
  10. CO Q 10 [Concomitant]
     Indication: CARDIAC DISORDER

REACTIONS (5)
  - Atrial tachycardia [Unknown]
  - Drug effect increased [Not Recovered/Not Resolved]
  - Drug effect decreased [Not Recovered/Not Resolved]
  - Blood thyroid stimulating hormone increased [Not Recovered/Not Resolved]
  - Blood thyroid stimulating hormone decreased [Not Recovered/Not Resolved]
